FAERS Safety Report 24727101 (Version 1)
Quarter: 2024Q4

REPORT INFORMATION
  Report Type: Spontaneous
  Country: GB (occurrence: GB)
  Receive Date: 20241212
  Receipt Date: 20241212
  Transmission Date: 20250115
  Serious: Yes (Other)
  Sender: TEVA
  Company Number: None

PATIENT
  Age: 71 Year
  Sex: Male

DRUGS (15)
  1. WARFARIN [Suspect]
     Active Substance: WARFARIN
     Indication: Product used for unknown indication
     Dosage: 1 MG TABLETS TAKE AS INSTRUCTED BY ANTICOAGULANT CLINIC 26/07/24 4MG :?MON, WED,FRI 3MG:TUES, THU...
     Route: 065
  2. SENNA [Concomitant]
     Active Substance: SENNA LEAF\SENNOSIDES\SENNOSIDES A AND B
     Indication: Product used for unknown indication
     Dosage: 7.5 MG TABLETS TWO TO BE TAKEN AT NIGHT WHEN REQUIRED
     Route: 065
  3. ATORVASTATIN [Concomitant]
     Active Substance: ATORVASTATIN
     Indication: Product used for unknown indication
     Dosage: 20 MG TABLETS ONE TO BE TAKEN EACH DAY
     Route: 065
  4. SPIRONOLACTONE [Concomitant]
     Active Substance: SPIRONOLACTONE
     Indication: Product used for unknown indication
     Dosage: 25 MG TABLETS ONE TO BE TAKEN EACH DAY
     Route: 065
  5. FUROSEMIDE [Concomitant]
     Active Substance: FUROSEMIDE
     Indication: Product used for unknown indication
     Dosage: TIME INTERVAL: 0.33333333 DAYS: 40 MG TABLETS THREE TO BE TAKEN IN THE MORNING AND THREE AT LUNCH...
     Route: 065
  6. AMLODIPINE [Concomitant]
     Active Substance: AMLODIPINE BESYLATE
     Indication: Product used for unknown indication
     Dosage: DAILY DOSE: 10 MG DAILY
     Route: 065
  7. ALLOPURINOL [Concomitant]
     Active Substance: ALLOPURINOL
     Indication: Product used for unknown indication
     Dosage: DAILY DOSE: 100 MG DAILY
     Route: 065
  8. ALBUTEROL [Concomitant]
     Active Substance: ALBUTEROL
     Indication: Product used for unknown indication
     Dosage: 100 MICROGRAMS / DOSE EASI-BREATHE INHALER ONE OR TWO PUFFS TO BE?INHALED UP TO FOUR TIMES A DAY
     Route: 055
  9. HYDRALAZINE [Concomitant]
     Active Substance: HYDRALAZINE HYDROCHLORIDE
     Indication: Product used for unknown indication
     Dosage: DAILY DOSE : 200 MG DAILY
     Route: 065
  10. DAPAGLIFLOZIN [Concomitant]
     Active Substance: DAPAGLIFLOZIN
     Indication: Product used for unknown indication
     Dosage: 10 MG TABLETS ONE TO BE TAKEN DAILY, DAILY DOSE: 10 MG DAILY
     Route: 065
  11. DOXAZOSIN [Concomitant]
     Active Substance: DOXAZOSIN\DOXAZOSIN MESYLATE
     Indication: Product used for unknown indication
     Dosage: TWO TO BE TAKEN TWICE A DAY, DAILY DOSE: 4 DOSAGE FORM DAILY
     Route: 065
  12. SODIUM BICARBONATE [Concomitant]
     Active Substance: SODIUM BICARBONATE
     Indication: Product used for unknown indication
     Dosage: TIME INTERVAL: 0.33333333 DAYS: 500 MG CAPSULES ONE THREE TIMES A DAY, DAILY DOSE: 1500 MG DAILY
     Route: 065
  13. PREGABALIN [Concomitant]
     Active Substance: PREGABALIN
     Indication: Product used for unknown indication
     Dosage: 25 MG CAPSULES ONE TO BE TAKEN TWICE A DAY, DAILY DOSE: 50 MG DAILY
     Route: 065
  14. ANORO ELLIPTA [Concomitant]
     Active Substance: UMECLIDINIUM BROMIDE\VILANTEROL TRIFENATATE
     Indication: Product used for unknown indication
     Dosage: 55 / 22 MICROGRAMS / DOSE DRY POWDER INHALER ONE DOSE TO BE INHALED EACH DAY
     Route: 065
  15. ISOSORBIDE MONONITRATE [Concomitant]
     Active Substance: ISOSORBIDE MONONITRATE
     Indication: Product used for unknown indication
     Dosage: 60 XL TABLETS 2 TABLETS ONCE A DAY, 60 XL
     Route: 065

REACTIONS (2)
  - International normalised ratio increased [Unknown]
  - Abdominal wall haematoma [Recovered/Resolved]
